FAERS Safety Report 24303340 (Version 2)
Quarter: 2024Q3

REPORT INFORMATION
  Report Type: Spontaneous
  Country: IT (occurrence: IT)
  Receive Date: 20240910
  Receipt Date: 20240917
  Transmission Date: 20241016
  Serious: Yes (Other)
  Sender: PFIZER
  Company Number: IT-PFIZER INC-PV202400115332

PATIENT
  Age: 71 Year
  Sex: Male

DRUGS (7)
  1. DOXORUBICIN HYDROCHLORIDE [Suspect]
     Active Substance: DOXORUBICIN HYDROCHLORIDE
     Indication: Hodgkin^s disease nodular sclerosis stage IV
     Dosage: CYCLIC (25 MG/MQ)/ON DAY 1 AND DAY 15 OF EACH CYCLE OF 28 DAYS/6 CYCLES IN TOTAL
     Dates: start: 202205
  2. ADCETRIS [Suspect]
     Active Substance: BRENTUXIMAB VEDOTIN
     Indication: Hodgkin^s disease nodular sclerosis stage IV
     Dosage: 1.2 MG/KG ON DAY 1 AND DAY 15 OF EACH CYCLE OF 28 DAYS; 2 CYCLES
     Dates: start: 202205, end: 2022
  3. ADCETRIS [Suspect]
     Active Substance: BRENTUXIMAB VEDOTIN
     Dosage: 1.2 MG/KG, CYCLIC (ON DAY 1 AND DAY 15 OF EACH CYCLE OF 28 DAYS)
     Dates: start: 2022, end: 202211
  4. ADCETRIS [Suspect]
     Active Substance: BRENTUXIMAB VEDOTIN
     Dosage: 0.9 MG/KG, CYCLIC
     Dates: start: 202211
  5. VINBLASTINE [Suspect]
     Active Substance: VINBLASTINE
     Indication: Hodgkin^s disease nodular sclerosis stage IV
     Dosage: CYCLIC, (6 MG/MQ)/ON DAY 1 AND DAY 15 OF EACH CYCLE OF 28 DAYS/6 CYCLES IN TOTAL
     Dates: start: 202205
  6. DACARBAZINE [Suspect]
     Active Substance: DACARBAZINE
     Indication: Hodgkin^s disease nodular sclerosis stage IV
     Dosage: CYCLIC (375 MG/MQ)/ON DAY 1 AND DAY 15 OF EACH CYCLE OF 28 DAYS/6 CYCLES IN TOTAL
     Dates: start: 202205
  7. GRANULOCYTE COLONY-STIMULATING FACTOR NOS [Concomitant]
     Active Substance: GRANULOCYTE COLONY-STIMULATING FACTOR NOS
     Indication: Prophylaxis
     Dosage: UNK

REACTIONS (4)
  - Posterior reversible encephalopathy syndrome [Recovered/Resolved]
  - Febrile neutropenia [Unknown]
  - Mucosal inflammation [Unknown]
  - Neuropathy peripheral [Recovering/Resolving]

NARRATIVE: CASE EVENT DATE: 20220101
